FAERS Safety Report 22206878 (Version 1)
Quarter: 2023Q2

REPORT INFORMATION
  Report Type: Report from Study
  Country: US (occurrence: US)
  Receive Date: 20230413
  Receipt Date: 20230413
  Transmission Date: 20230722
  Serious: Yes (Disabling, Other)
  Sender: FDA-Public Use
  Company Number: US-BoehringerIngelheim-2021-BI-135742

PATIENT
  Age: 77 Year
  Sex: Male

DRUGS (3)
  1. OFEV [Suspect]
     Active Substance: NINTEDANIB
     Indication: Idiopathic pulmonary fibrosis
     Route: 048
     Dates: start: 20211020, end: 20220111
  2. OFEV [Suspect]
     Active Substance: NINTEDANIB
     Dosage: WITH FOOD
     Route: 048
     Dates: start: 20220209
  3. OFEV [Suspect]
     Active Substance: NINTEDANIB
     Dosage: TAKE WITH FOOD
     Route: 048
     Dates: start: 202202

REACTIONS (33)
  - Cervical vertebral fracture [Recovering/Resolving]
  - Hip fracture [Recovering/Resolving]
  - Cervical vertebral fracture [Not Recovered/Not Resolved]
  - Rib fracture [Not Recovered/Not Resolved]
  - Fall [Not Recovered/Not Resolved]
  - Headache [Recovered/Resolved]
  - Diarrhoea [Recovered/Resolved]
  - Eye pain [Recovered/Resolved]
  - Dizziness [Not Recovered/Not Resolved]
  - Depression [Not Recovered/Not Resolved]
  - Abdominal pain upper [Not Recovered/Not Resolved]
  - Heart rate increased [Not Recovered/Not Resolved]
  - Weight decreased [Not Recovered/Not Resolved]
  - Fall [Recovering/Resolving]
  - Diarrhoea [Recovering/Resolving]
  - Blood pressure increased [Recovered/Resolved]
  - Asthenia [Not Recovered/Not Resolved]
  - Fatigue [Not Recovered/Not Resolved]
  - Throat clearing [Not Recovered/Not Resolved]
  - Nausea [Unknown]
  - Feeling abnormal [Unknown]
  - Psychiatric symptom [Unknown]
  - Wheezing [Unknown]
  - Dyspnoea exertional [Not Recovered/Not Resolved]
  - Amnesia [Unknown]
  - Decreased appetite [Not Recovered/Not Resolved]
  - Hypoacusis [Unknown]
  - Headache [Recovered/Resolved]
  - Pneumonia [Not Recovered/Not Resolved]
  - Insomnia [Unknown]
  - Malaise [Recovering/Resolving]
  - Gait disturbance [Not Recovered/Not Resolved]
  - Pain [Unknown]

NARRATIVE: CASE EVENT DATE: 20211001
